FAERS Safety Report 21573052 (Version 2)
Quarter: 2022Q4

REPORT INFORMATION
  Report Type: Spontaneous
  Country: CA (occurrence: CA)
  Receive Date: 20221109
  Receipt Date: 20221111
  Transmission Date: 20230113
  Serious: Yes (Other)
  Sender: FDA-Public Use
  Company Number: CA-PFIZER INC-PV202200097427

PATIENT
  Age: 79 Year
  Sex: Female

DRUGS (2)
  1. BOSULIF [Suspect]
     Active Substance: BOSUTINIB MONOHYDRATE
     Indication: Chronic myeloid leukaemia
     Dosage: 300 MG, 1X/DAY
     Route: 048
  2. BOSULIF [Suspect]
     Active Substance: BOSUTINIB MONOHYDRATE
     Dosage: 100 MG, DAILY
     Route: 048

REACTIONS (7)
  - Thrombocytopenia [Unknown]
  - Atrial fibrillation [Unknown]
  - Ejection fraction decreased [Unknown]
  - Fatigue [Unknown]
  - Asthenia [Unknown]
  - Neoplasm progression [Unknown]
  - Loss of personal independence in daily activities [Unknown]
